FAERS Safety Report 5793046-2 (Version None)
Quarter: 2008Q2

REPORT INFORMATION
  Report Type: 
  Country: None (occurrence: None)
  Receive Date: 20080627
  Receipt Date: 20080613
  Transmission Date: 20081010
  Serious: Yes (Hospitalization)
  Sender: FDA-Public Use
  Company Number: JP-ASTRAZENECA-2008AP04269

PATIENT
  Age: 21094 Day
  Sex: Female

DRUGS (17)
  1. SEROQUEL [Suspect]
     Indication: PSYCHOTIC DISORDER
     Route: 048
     Dates: start: 20080115, end: 20080427
  2. MERCAZOLE [Suspect]
     Indication: HYPERTHYROIDISM
     Route: 048
     Dates: end: 20080428
  3. NORVASC [Suspect]
     Indication: HYPERTENSION
     Route: 048
     Dates: end: 20080428
  4. ZOVIRAX [Suspect]
     Indication: HERPES ZOSTER
     Route: 041
     Dates: start: 20080424, end: 20080428
  5. AMOBAN [Concomitant]
     Indication: PSYCHOTIC DISORDER
     Route: 048
     Dates: start: 20070629
  6. GLYSENNID [Concomitant]
     Indication: PSYCHOTIC DISORDER
     Route: 048
     Dates: start: 20070629
  7. MAGMITT [Concomitant]
     Indication: PSYCHOTIC DISORDER
     Route: 048
     Dates: start: 20070629
  8. PAXIL [Concomitant]
     Indication: PSYCHOTIC DISORDER
     Route: 048
     Dates: start: 20071009
  9. DEPAS [Concomitant]
     Indication: PSYCHOTIC DISORDER
     Route: 048
     Dates: start: 20070629
  10. PREDONINE [Concomitant]
     Indication: RHEUMATOID ARTHRITIS
     Route: 048
  11. LOXONIN [Concomitant]
     Indication: RHEUMATOID ARTHRITIS
     Route: 048
  12. FAMOTIDINE [Concomitant]
     Indication: RHEUMATOID ARTHRITIS
     Route: 048
  13. AZULFIDINE EN-TABS [Concomitant]
     Indication: RHEUMATOID ARTHRITIS
     Route: 048
  14. MOVER [Concomitant]
     Indication: RHEUMATOID ARTHRITIS
     Route: 048
  15. CYTOTEC [Concomitant]
     Indication: RHEUMATOID ARTHRITIS
     Route: 048
  16. THYRADIN [Concomitant]
     Indication: HYPERTHYROIDISM
     Route: 048
  17. ZOVIRAX [Concomitant]
     Dates: start: 20080424, end: 20080428

REACTIONS (1)
  - WHITE BLOOD CELL COUNT DECREASED [None]
